FAERS Safety Report 5282824-4 (Version None)
Quarter: 2007Q2

REPORT INFORMATION
  Report Type: 
  Country: None (occurrence: None)
  Receive Date: 20070402
  Receipt Date: 20070323
  Transmission Date: 20071010
  Serious: Yes (Hospitalization)
  Sender: FDA-Public Use
  Company Number: US-JNJFOC-20070306067

PATIENT
  Age: 52 Year
  Sex: Male
  Weight: 82.56 kg

DRUGS (15)
  1. DURAGESIC-100 [Suspect]
     Indication: BACK PAIN
     Route: 062
  2. HUMALOG [Concomitant]
     Indication: DIABETES MELLITUS
     Route: 050
  3. LANTUS [Concomitant]
     Indication: DIABETES MELLITUS
     Route: 050
  4. POTASSIUM ACETATE [Concomitant]
     Indication: NUTRITIONAL SUPPORT
     Route: 048
  5. FOLIC ACID [Concomitant]
     Indication: NUTRITIONAL SUPPORT
     Route: 048
  6. FUROSEMIDE [Concomitant]
     Route: 065
  7. PREDNISONE [Concomitant]
     Route: 065
  8. METHOTREXATE [Concomitant]
     Route: 065
  9. LEUCOVORIN CALCIUM [Concomitant]
     Route: 065
  10. CALCIUM, VITAMIN D [Concomitant]
     Route: 065
  11. CENTRUM [Concomitant]
     Route: 065
  12. FISH OIL [Concomitant]
     Route: 065
  13. ALTACE [Concomitant]
     Route: 065
  14. ACIPHEX [Concomitant]
     Route: 065
  15. CYCLOBENZAPRINE HCL [Concomitant]
     Route: 065

REACTIONS (3)
  - FALL [None]
  - HEAD INJURY [None]
  - MYALGIA [None]
